FAERS Safety Report 7959407-8 (Version None)
Quarter: 2011Q4

REPORT INFORMATION
  Report Type: 
  Country: None (occurrence: None)
  Receive Date: 20111206
  Receipt Date: 20111202
  Transmission Date: 20120403
  Serious: Yes (Hospitalization, Other)
  Sender: FDA-Public Use
  Company Number: BR-ABBOTT-11P-020-0877315-00

PATIENT
  Sex: Female
  Weight: 41 kg

DRUGS (5)
  1. DIMETICONE [Concomitant]
     Indication: FLATULENCE
  2. SCOPOLAMINE [Concomitant]
     Indication: FLATULENCE
  3. HUMIRA [Suspect]
     Indication: CROHN'S DISEASE
     Route: 058
     Dates: start: 20100701
  4. HUMIRA [Suspect]
     Route: 058
  5. HUMIRA [Suspect]
     Route: 058

REACTIONS (12)
  - ABSCESS INTESTINAL [None]
  - ARTHRALGIA [None]
  - WEIGHT INCREASED [None]
  - FLUID RETENTION [None]
  - TACHYCARDIA [None]
  - INFLAMMATION [None]
  - WEIGHT DECREASED [None]
  - ASTHENIA [None]
  - ABNORMAL BEHAVIOUR [None]
  - MALAISE [None]
  - DECREASED APPETITE [None]
  - ABSCESS [None]
